FAERS Safety Report 9442030 (Version 1)
Quarter: 2013Q3

REPORT INFORMATION
  Report Type: Spontaneous
  Country: US (occurrence: US)
  Receive Date: 20130806
  Receipt Date: 20130806
  Transmission Date: 20140515
  Serious: Yes (Death, Hospitalization, Other)
  Sender: FDA-Public Use
  Company Number: US-ROXANE LABORATORIES, INC.-2013-RO-01276RO

PATIENT
  Age: 20 Year
  Sex: Male

DRUGS (2)
  1. DEXAMETHASONE [Suspect]
     Indication: BRAIN OEDEMA
     Dosage: 8 MG
  2. TEMOZOLOMIDE [Suspect]
     Indication: ASTROCYTOMA

REACTIONS (5)
  - Astrocytoma [Fatal]
  - Diabetes insipidus [Unknown]
  - Oligodipsia [Unknown]
  - Hypernatraemia [Recovered/Resolved]
  - Diabetes mellitus [Unknown]
